FAERS Safety Report 9146870 (Version 1)
Quarter: 2013Q1

REPORT INFORMATION
  Report Type: Spontaneous
  Country: US (occurrence: None)
  Receive Date: 20130228
  Receipt Date: 20130228
  Transmission Date: 20140127
  Serious: Yes (Life-Threatening)
  Sender: FDA-Public Use
  Company Number: None

PATIENT
  Age: 24 Year
  Sex: Female
  Weight: 73.6 kg

DRUGS (1)
  1. TERBUTALINE [Suspect]
     Indication: LABOUR INDUCTION
     Dosage: 0.25 MG ONCE IV
     Route: 042
     Dates: start: 20130219

REACTIONS (4)
  - Catatonia [None]
  - Grand mal convulsion [None]
  - Exposure during pregnancy [None]
  - Postictal state [None]
